FAERS Safety Report 4896844-2 (Version None)
Quarter: 2006Q1

REPORT INFORMATION
  Report Type: 
  Country: None (occurrence: None)
  Receive Date: 20060126
  Receipt Date: 20060111
  Transmission Date: 20060701
  Serious: Yes (Hospitalization)
  Sender: FDA-Public Use
  Company Number: 6019760

PATIENT
  Age: 70 Year
  Sex: Female

DRUGS (7)
  1. DETENSIEL                 (BISOPROLOL FUARATE) [Suspect]
     Dosage: ORAL
     Route: 048
     Dates: start: 20051001
  2. RAMIPRIL [Suspect]
     Dosage: ORAL
     Route: 048
     Dates: start: 20051001
  3. KARDEGIC [Suspect]
     Dosage: ORAL
     Route: 048
     Dates: start: 20051001
  4. PRAVASTATIN [Suspect]
     Dosage: ORAL
     Route: 048
     Dates: start: 20051001
  5. ACTONEL [Suspect]
     Dosage: ORAL FOR YEARS
     Route: 048
  6. PLAVIX [Suspect]
     Dosage: ORAL
     Dates: start: 20051001
  7. LEVOTHYROXINE SODIUM [Concomitant]

REACTIONS (5)
  - BLOOD ALKALINE PHOSPHATASE INCREASED [None]
  - CHOLESTASIS [None]
  - FRACTURE [None]
  - GAMMA-GLUTAMYLTRANSFERASE INCREASED [None]
  - THROMBOCYTOPENIA [None]
